FAERS Safety Report 12604763 (Version 1)
Quarter: 2016Q3

REPORT INFORMATION
  Report Type: Other
  Country: FR (occurrence: FR)
  Receive Date: 20160728
  Receipt Date: 20160728
  Transmission Date: 20161109
  Serious: Yes (Hospitalization)
  Sender: FDA-Public Use
  Company Number: FR-VALIDUS PHARMACEUTICALS LLC-FR-2016VAL002337

PATIENT
  Age: 88 Year
  Sex: Female

DRUGS (5)
  1. LAROXYL [Suspect]
     Active Substance: AMITRIPTYLINE
     Indication: BURNING SENSATION
  2. FUROSEMIDE. [Suspect]
     Active Substance: FUROSEMIDE
     Dosage: 40 MG, DAILY
     Route: 048
     Dates: start: 20160617, end: 20160621
  3. LAROXYL [Suspect]
     Active Substance: AMITRIPTYLINE
     Indication: PARAESTHESIA
     Dosage: 10 DROP(S);AT BEDTIME
     Route: 048
     Dates: start: 20160620, end: 20160621
  4. LYRICA [Suspect]
     Active Substance: PREGABALIN
     Indication: PARAESTHESIA
     Dosage: 50 MG, TWICE A DAY
     Route: 048
     Dates: start: 20160620
  5. FUROSEMIDE. [Suspect]
     Active Substance: FUROSEMIDE
     Indication: HYPERTENSION
     Dosage: 20 MG, DAILY
     Route: 048

REACTIONS (1)
  - Fall [Recovered/Resolved with Sequelae]

NARRATIVE: CASE EVENT DATE: 20160620
